FAERS Safety Report 23314469 (Version 12)
Quarter: 2024Q2

REPORT INFORMATION
  Report Type: Spontaneous
  Country: US (occurrence: US)
  Receive Date: 20231219
  Receipt Date: 20240429
  Transmission Date: 20240715
  Serious: No
  Sender: FDA-Public Use
  Company Number: US-PFIZER INC-202300435630

PATIENT
  Age: 55 Year
  Sex: Female
  Weight: 145.15 kg

DRUGS (8)
  1. GENOTROPIN [Suspect]
     Active Substance: SOMATROPIN
     Indication: Growth hormone deficiency
     Dosage: EVERY 3 DAYS
  2. GENOTROPIN [Suspect]
     Active Substance: SOMATROPIN
     Indication: Growth hormone deficiency
     Dosage: UNK
  3. GENOTROPIN [Suspect]
     Active Substance: SOMATROPIN
     Dosage: 0.3 (UNKNOWN UNIT), EVERY 3 DAY
  4. AMLODIPINE [Concomitant]
     Active Substance: AMLODIPINE BESYLATE
     Indication: Hypertension
     Dosage: 5 MG, 1X/DAY
     Route: 048
  5. ATENOLOL [Concomitant]
     Active Substance: ATENOLOL
     Indication: Hypertension
     Dosage: 50 MG, 1X/DAY
     Route: 048
  6. LEVOTHYROXINE [Concomitant]
     Active Substance: LEVOTHYROXINE\LEVOTHYROXINE SODIUM
     Dosage: 100 UG, 1X/DAY
     Route: 048
  7. METFORMIN [Concomitant]
     Active Substance: METFORMIN HYDROCHLORIDE
     Dosage: UNK
  8. OZEMPIC [Concomitant]
     Active Substance: SEMAGLUTIDE
     Dosage: UNK

REACTIONS (15)
  - Off label use [Unknown]
  - Drug dose omission by device [Unknown]
  - Poor quality device used [Unknown]
  - Device delivery system issue [Unknown]
  - Product deposit [Unknown]
  - Device issue [Unknown]
  - Device issue [Unknown]
  - Device breakage [Unknown]
  - Quality of life decreased [Unknown]
  - Myalgia [Unknown]
  - Bone pain [Unknown]
  - Hypotonia [Unknown]
  - Depression [Unknown]
  - Poor quality sleep [Unknown]
  - Blood growth hormone decreased [Unknown]

NARRATIVE: CASE EVENT DATE: 20230101
